FAERS Safety Report 12738433 (Version 1)
Quarter: 2016Q3

REPORT INFORMATION
  Report Type: Spontaneous
  Country: US (occurrence: US)
  Receive Date: 20160913
  Receipt Date: 20160913
  Transmission Date: 20161109
  Serious: No
  Sender: FDA-Public Use
  Company Number: US-PFIZER INC-2016422678

PATIENT
  Age: 68 Year
  Sex: Male

DRUGS (8)
  1. ACETYLSALICYLIC ACID [Suspect]
     Active Substance: ASPIRIN
     Indication: PROPHYLAXIS
     Dosage: 81 MG, UNK
  2. VIAGRA [Suspect]
     Active Substance: SILDENAFIL CITRATE
  3. GLIMEPIRIDE. [Suspect]
     Active Substance: GLIMEPIRIDE
  4. JANUVIA [Suspect]
     Active Substance: SITAGLIPTIN PHOSPHATE
  5. METFORMIN HCL [Suspect]
     Active Substance: METFORMIN HYDROCHLORIDE
  6. ZOCOR [Suspect]
     Active Substance: SIMVASTATIN
  7. LISINOPRIL. [Suspect]
     Active Substance: LISINOPRIL
  8. CILOSTAZOL. [Suspect]
     Active Substance: CILOSTAZOL

REACTIONS (2)
  - Ejaculation failure [Unknown]
  - Drug effect prolonged [Unknown]
